FAERS Safety Report 24942069 (Version 1)
Quarter: 2025Q1

REPORT INFORMATION
  Report Type: Spontaneous
  Country: FR (occurrence: FR)
  Receive Date: 20250207
  Receipt Date: 20250207
  Transmission Date: 20250409
  Serious: Yes (Disabling, Other)
  Sender: BRISTOL-MYERS SQUIBB COMPANY
  Company Number: FR-BRISTOL-MYERS SQUIBB COMPANY-2025-014766

PATIENT
  Age: 44 Year
  Sex: Female

DRUGS (1)
  1. SPRYCEL [Suspect]
     Active Substance: DASATINIB
     Indication: Chronic myeloid leukaemia

REACTIONS (16)
  - Occipital neuralgia [Unknown]
  - Headache [Unknown]
  - Fatigue [Unknown]
  - Tendonitis [Unknown]
  - Soft tissue swelling [Unknown]
  - Generalised oedema [Unknown]
  - Peripheral swelling [Unknown]
  - Asthenia [Unknown]
  - Localised oedema [Unknown]
  - Graves^ disease [Unknown]
  - Thyroid disorder [Not Recovered/Not Resolved]
  - Clostridium difficile infection [Unknown]
  - Hair colour changes [Unknown]
  - Vision blurred [Unknown]
  - Visual impairment [Unknown]
  - Off label use [Unknown]
